FAERS Safety Report 12188610 (Version 1)
Quarter: 2016Q1

REPORT INFORMATION
  Report Type: Spontaneous
  Country: US (occurrence: US)
  Receive Date: 20160317
  Receipt Date: 20160317
  Transmission Date: 20160526
  Serious: Yes (Death)
  Sender: FDA-Public Use
  Company Number: US-UCBSA-2016009330

PATIENT
  Age: 82 Year
  Sex: Female
  Weight: 54 kg

DRUGS (1)
  1. NEUPRO [Suspect]
     Active Substance: ROTIGOTINE
     Indication: PARKINSON^S DISEASE
     Dosage: PATIENT TOOK 8 MG PLUS 2 MG
     Dates: start: 201309

REACTIONS (3)
  - Urinary retention [Recovered/Resolved]
  - Dyssomnia [Recovered/Resolved]
  - Death [Fatal]
